FAERS Safety Report 13548507 (Version 1)
Quarter: 2017Q2

REPORT INFORMATION
  Report Type: Spontaneous
  Country: US (occurrence: US)
  Receive Date: 20170516
  Receipt Date: 20170516
  Transmission Date: 20170830
  Serious: No
  Sender: FDA-Public Use
  Company Number: US-JNJFOC-20170406712

PATIENT
  Age: 60 Year
  Sex: Female
  Weight: 86.18 kg

DRUGS (2)
  1. WOMENS ROGAINE UNSCENTED [Suspect]
     Active Substance: MINOXIDIL
     Route: 061
  2. WOMENS ROGAINE UNSCENTED [Suspect]
     Active Substance: MINOXIDIL
     Indication: ALOPECIA
     Dosage: CAPFUL,1X DAILY 3-4 TIMES TOTAL
     Route: 061

REACTIONS (4)
  - Rash [Recovering/Resolving]
  - Overdose [Recovering/Resolving]
  - Urticaria [Recovering/Resolving]
  - Blister [Recovering/Resolving]
